FAERS Safety Report 7340034-0 (Version None)
Quarter: 2011Q1

REPORT INFORMATION
  Report Type: 
  Country: None (occurrence: None)
  Receive Date: 20110309
  Receipt Date: 20110303
  Transmission Date: 20110831
  Serious: Yes (Death, Life-Threatening, Disabling)
  Sender: FDA-Public Use
  Company Number: JP-ASTELLAS-2011JP001113

PATIENT
  Sex: Female
  Weight: 74 kg

DRUGS (20)
  1. SIMULECT [Concomitant]
     Dosage: 20 MG, UID/QD
     Route: 042
     Dates: start: 20101217, end: 20101221
  2. PRECEDEX [Concomitant]
     Dosage: UNK
     Route: 042
     Dates: start: 20101209, end: 20101209
  3. PROGRAF [Suspect]
     Dosage: UNK
     Route: 048
     Dates: start: 20101205, end: 20101224
  4. ITRIZOLE [Concomitant]
     Dosage: 200 MG, UID/QD
     Route: 042
     Dates: start: 20101207, end: 20101209
  5. FLUMARIN [Concomitant]
     Dosage: 0.5 G, BID
     Route: 042
     Dates: start: 20101207, end: 20101211
  6. ASTRIC [Concomitant]
     Dosage: 200 MG, TID
     Route: 048
     Dates: start: 20101207
  7. KAKODIN [Concomitant]
     Dosage: UNK
     Route: 042
     Dates: start: 20101208, end: 20101210
  8. BAKTAR [Concomitant]
     Dosage: 1 G, BID
     Route: 048
     Dates: start: 20101207
  9. LENDORMIN [Concomitant]
     Dosage: 0.25 MG, UID/QD
     Route: 048
     Dates: start: 20101206, end: 20101206
  10. LASIX [Concomitant]
     Dosage: UNK
     Route: 042
     Dates: start: 20101207, end: 20101217
  11. VICCILLIN-S [Concomitant]
     Dosage: 0.5 MG, BID
     Route: 042
     Dates: start: 20101208, end: 20101211
  12. NORADRENALINE [Concomitant]
     Dosage: UNK
     Route: 042
     Dates: start: 20101217
  13. ULCERLMIN [Concomitant]
     Dosage: 1 G, TID
     Route: 048
     Dates: start: 20101207
  14. URSO 250 [Concomitant]
     Dosage: 200 MG, TID
     Route: 048
     Dates: start: 20101207, end: 20101220
  15. GASTER [Concomitant]
     Dosage: 10 MG, BID
     Route: 042
     Dates: start: 20101207, end: 20101212
  16. CELLCEPT [Suspect]
     Dosage: 1500 MG, UID/QD
     Route: 048
     Dates: start: 20101213
  17. HANP [Concomitant]
     Dosage: UNK
     Route: 042
     Dates: start: 20101207, end: 20101224
  18. PROPOFOL [Concomitant]
     Dosage: UNK
     Route: 042
     Dates: start: 20101207, end: 20101209
  19. SOL-MELCORT [Concomitant]
     Dosage: UNK
     Route: 042
     Dates: start: 20101207
  20. FUNGUARD [Concomitant]
     Dosage: 75 MG, UID/QD
     Route: 042
     Dates: start: 20101210

REACTIONS (4)
  - PANCYTOPENIA [None]
  - VENTRICULAR ARRHYTHMIA [None]
  - RENAL FAILURE ACUTE [None]
  - HEPATIC FAILURE [None]
